FAERS Safety Report 9332138 (Version 1)
Quarter: 2013Q2

REPORT INFORMATION
  Report Type: Report from Study
  Country: JP (occurrence: JP)
  Receive Date: 20130606
  Receipt Date: 20130606
  Transmission Date: 20140414
  Serious: Yes (Hospitalization)
  Sender: FDA-Public Use
  Company Number: JP-009507513-0801USA06185

PATIENT
  Age: 86 Year
  Sex: Female

DRUGS (9)
  1. EZETIMIBE [Suspect]
     Indication: HYPERCHOLESTEROLAEMIA
     Dosage: 10 MG, QD
     Route: 048
     Dates: start: 20070915, end: 20071216
  2. RISEDRONATE SODIUM [Concomitant]
  3. OCTOTIAMINE [Concomitant]
  4. SENNA [Concomitant]
  5. SENNOSIDES [Concomitant]
  6. ASPIRIN [Concomitant]
  7. REBAMIPIDE [Concomitant]
  8. AMBROXOL HYDROCHLORIDE [Concomitant]
  9. ESTAZOLAM [Concomitant]

REACTIONS (2)
  - Ileus [Recovered/Resolved]
  - Hypertension [Recovering/Resolving]
